FAERS Safety Report 10541848 (Version 1)
Quarter: 2014Q4

REPORT INFORMATION
  Report Type: Report from Study
  Country: MX (occurrence: MX)
  Receive Date: 20141024
  Receipt Date: 20141024
  Transmission Date: 20150529
  Serious: Yes (Death, Other)
  Sender: FDA-Public Use
  Company Number: MX-ROXANE LABORATORIES, INC.-2014-BI-50764GD

PATIENT
  Age: 15 Year
  Sex: Female

DRUGS (2)
  1. AZATHIOPRINE. [Suspect]
     Active Substance: AZATHIOPRINE
     Indication: SYSTEMIC LUPUS ERYTHEMATOSUS
     Route: 065
  2. PREDNISONE. [Suspect]
     Active Substance: PREDNISONE
     Indication: SYSTEMIC LUPUS ERYTHEMATOSUS
     Route: 065

REACTIONS (6)
  - Pneumocystis jirovecii infection [Unknown]
  - Seizure [Unknown]
  - Mycobacterial infection [Fatal]
  - Cerebral haemorrhage [Fatal]
  - Urinary tract infection fungal [Unknown]
  - Burkholderia cepacia complex infection [Unknown]
